FAERS Safety Report 20175526 (Version 2)
Quarter: 2022Q1

REPORT INFORMATION
  Report Type: Spontaneous
  Country: JP (occurrence: JP)
  Receive Date: 20211213
  Receipt Date: 20220202
  Transmission Date: 20220424
  Serious: Yes (Hospitalization, Other)
  Sender: FDA-Public Use
  Company Number: JP-GLAXOSMITHKLINE-JP2021JPN102787

PATIENT
  Age: 91 Year
  Sex: Female
  Weight: 42 kg

DRUGS (4)
  1. TRELEGY ELLIPTA [Suspect]
     Active Substance: FLUTICASONE FUROATE\UMECLIDINIUM BROMIDE\VILANTEROL TRIFENATATE
     Indication: Bronchiectasis
     Dosage: 100 ?G, QD, 1 INHALATION
     Route: 055
  2. ERYTHROCIN [Concomitant]
     Active Substance: ERYTHROMYCIN LACTOBIONATE
     Dosage: UNK
  3. HERBALS [Concomitant]
     Active Substance: HERBALS
     Dosage: UNK
  4. ROZEREM [Concomitant]
     Active Substance: RAMELTEON
     Dosage: UNK

REACTIONS (4)
  - Pneumonia [Recovered/Resolved]
  - Femoral neck fracture [Recovering/Resolving]
  - Pyrexia [Recovered/Resolved]
  - Product use in unapproved indication [Unknown]

NARRATIVE: CASE EVENT DATE: 20190919
